FAERS Safety Report 7474815-X (Version None)
Quarter: 2011Q2

REPORT INFORMATION
  Report Type: 
  Country: None (occurrence: None)
  Receive Date: 20110512
  Receipt Date: 20110504
  Transmission Date: 20111010
  Serious: Yes (Death)
  Sender: FDA-Public Use
  Company Number: US-CELGENEUS-163-21880-11050750

PATIENT
  Sex: Male

DRUGS (9)
  1. VITAMIN B-12 [Concomitant]
     Dosage: 1000 MICROGRAM
     Route: 050
  2. VITAMIN C [Concomitant]
     Dosage: 100 MICROGRAM
     Route: 050
  3. REVLIMID [Suspect]
     Indication: MYELODYSPLASTIC SYNDROME
     Dosage: 10 MILLIGRAM
     Route: 048
     Dates: start: 20110201
  4. ASPIRIN [Concomitant]
     Dosage: 81 MILLIGRAM
     Route: 065
  5. METFORMIN HCL [Concomitant]
     Dosage: 500 MILLIGRAM
     Route: 065
  6. MULTI-VITAMIN [Concomitant]
     Route: 065
  7. GLIPIZIDE [Concomitant]
     Dosage: 10 MILLIGRAM
     Route: 065
  8. PLAVIX [Concomitant]
     Dosage: 75 MILLIGRAM
     Route: 065
  9. SIMVASTATIN [Concomitant]
     Dosage: 10 MILLIGRAM
     Route: 065

REACTIONS (1)
  - DEATH [None]
